FAERS Safety Report 9006984 (Version 1)
Quarter: 2013Q1

REPORT INFORMATION
  Report Type: Spontaneous
  Country: US (occurrence: US)
  Receive Date: 20130110
  Receipt Date: 20130110
  Transmission Date: 20140127
  Serious: Yes (Death)
  Sender: FDA-Public Use
  Company Number: US-009507513-0909USA03262

PATIENT
  Age: 2 Year
  Sex: Male
  Weight: 12.25 kg

DRUGS (2)
  1. SINGULAIR [Suspect]
     Indication: ASTHMA
     Dosage: 4 MG, UNK
     Route: 048
     Dates: start: 20090113, end: 20090116
  2. SINGULAIR [Suspect]
     Dosage: 4 MG, UNK
     Route: 048
     Dates: start: 20090121, end: 20090124

REACTIONS (6)
  - Gait disturbance [Fatal]
  - Aggression [Fatal]
  - Crying [Fatal]
  - Ear pain [Fatal]
  - Insomnia [Fatal]
  - Pyrexia [Fatal]
